FAERS Safety Report 8579681-7 (Version None)
Quarter: 2012Q3

REPORT INFORMATION
  Report Type: 
  Country: None (occurrence: None)
  Receive Date: 20120808
  Receipt Date: 20120801
  Transmission Date: 20120928
  Serious: Yes (Other)
  Sender: FDA-Public Use
  Company Number: US-JNJFOC-20120613156

PATIENT
  Sex: Female
  Weight: 73.48 kg

DRUGS (6)
  1. RISPERDAL [Suspect]
     Indication: SCHIZOPHRENIA
     Dosage: 1 MG NIGHTLY
     Route: 048
     Dates: start: 20080101
  2. RISPERIDONE [Suspect]
     Indication: SCHIZOPHRENIA
     Dosage: 1 MG NIGHTLY
     Route: 048
  3. RISPERDAL [Suspect]
     Route: 048
     Dates: start: 20040101, end: 20080101
  4. RISPERDAL [Suspect]
     Dosage: 1 MG NIGHTLY
     Route: 048
     Dates: start: 20080101
  5. RISPERIDONE [Suspect]
     Indication: BIPOLAR DISORDER
     Dosage: 1 MG NIGHTLY
     Route: 048
  6. RISPERDAL [Suspect]
     Indication: BIPOLAR DISORDER
     Route: 048
     Dates: start: 20040101, end: 20080101

REACTIONS (6)
  - ANXIETY [None]
  - PNEUMONIA [None]
  - INTERSTITIAL LUNG DISEASE [None]
  - BRONCHITIS [None]
  - SOMNOLENCE [None]
  - INSOMNIA [None]
